FAERS Safety Report 19509809 (Version 1)
Quarter: 2021Q3

REPORT INFORMATION
  Report Type: Spontaneous
  Country: GB (occurrence: GB)
  Receive Date: 20210709
  Receipt Date: 20210709
  Transmission Date: 20211014
  Serious: Yes (Other)
  Sender: FDA-Public Use
  Company Number: GB-AUROBINDO-AUR-APL-2021-028868

PATIENT
  Age: 64 Year
  Sex: Male
  Weight: 78 kg

DRUGS (8)
  1. TAMSULOSIN HYDROCHLORIDE. [Concomitant]
     Active Substance: TAMSULOSIN HYDROCHLORIDE
     Indication: ILL-DEFINED DISORDER
     Dosage: 1 DOSAGE FORM, ONCE A DAY(TAKE ONE DAILY)
     Route: 065
     Dates: start: 20200805
  2. BISOPROLOL [Concomitant]
     Active Substance: BISOPROLOL
     Indication: ILL-DEFINED DISORDER
     Dosage: 1 DOSAGE FORM, ONCE A DAY(TAKE ONE DAILY)
     Route: 065
     Dates: start: 20210324
  3. LORATADINE. [Concomitant]
     Active Substance: LORATADINE
     Indication: ILL-DEFINED DISORDER
     Dosage: 1 DOSAGE FORM, ONCE A DAY(TAKE ONE DAILY)
     Route: 065
     Dates: start: 20201019
  4. TADALAFIL. [Suspect]
     Active Substance: TADALAFIL
     Indication: ILL-DEFINED DISORDER
     Dosage: UNK
     Route: 065
     Dates: start: 20210628
  5. LANSOPRAZOLE. [Concomitant]
     Active Substance: LANSOPRAZOLE
     Indication: ILL-DEFINED DISORDER
     Dosage: 1 DOSAGE FORM, ONCE A DAY
     Route: 065
     Dates: start: 20210210
  6. SILDENAFIL. [Concomitant]
     Active Substance: SILDENAFIL
     Indication: ILL-DEFINED DISORDER
     Dosage: UNK UNK, AS DIRECTED
     Route: 065
     Dates: start: 20201019, end: 20210504
  7. TADALAFIL. [Concomitant]
     Active Substance: TADALAFIL
     Indication: ILL-DEFINED DISORDER
     Dosage: USE AS DIRECTED. ONE EVERY 3 DAYS WHEN NEEDED
     Route: 065
     Dates: start: 20210416, end: 20210628
  8. ATORVASTATIN [Concomitant]
     Active Substance: ATORVASTATIN
     Indication: ILL-DEFINED DISORDER
     Dosage: 1 DOSAGE FORM, ONCE A DAY
     Route: 065
     Dates: start: 20210210

REACTIONS (2)
  - Dizziness [Recovered/Resolved]
  - Palpitations [Recovered/Resolved]

NARRATIVE: CASE EVENT DATE: 20210628
